FAERS Safety Report 4808741-9 (Version None)
Quarter: 2005Q4

REPORT INFORMATION
  Report Type: 
  Country: None (occurrence: None)
  Receive Date: 20051021
  Receipt Date: 20040423
  Transmission Date: 20060501
  Serious: No
  Sender: FDA-Public Use
  Company Number: EWC040439007

PATIENT
  Sex: Female

DRUGS (1)
  1. OLANZAPINE [Suspect]

REACTIONS (1)
  - THROMBOSIS [None]
